FAERS Safety Report 11610793 (Version 1)
Quarter: 2015Q4

REPORT INFORMATION
  Report Type: Spontaneous
  Country: GB (occurrence: GB)
  Receive Date: 20151008
  Receipt Date: 20151008
  Transmission Date: 20160304
  Serious: Yes (Hospitalization)
  Sender: FDA-Public Use
  Company Number: GB-NEW HAVEN PHARMACEUTICALS, INC-NHP201509-000301

PATIENT
  Age: 68 Year
  Sex: Male

DRUGS (12)
  1. TAMSULOSIN [Concomitant]
     Active Substance: TAMSULOSIN
  2. ALLOPURINOL. [Concomitant]
     Active Substance: ALLOPURINOL
  3. DICLOFENAC [Suspect]
     Active Substance: DICLOFENAC
     Indication: OSTEOARTHRITIS
     Route: 048
     Dates: start: 2013, end: 20150918
  4. EZETIMIBE. [Concomitant]
     Active Substance: EZETIMIBE
  5. ACETYLSALICYLIC ACID [Suspect]
     Active Substance: ASPIRIN
     Route: 048
     Dates: start: 2010, end: 20150918
  6. CLOPIDOGREL [Suspect]
     Active Substance: CLOPIDOGREL BISULFATE
     Route: 048
     Dates: start: 2010, end: 20150918
  7. LEVOTHYROXINE. [Concomitant]
     Active Substance: LEVOTHYROXINE
  8. METOPROLOL [Concomitant]
     Active Substance: METOPROLOL
  9. NIFEDIPINE. [Concomitant]
     Active Substance: NIFEDIPINE
  10. PARACETAMOL [Concomitant]
     Active Substance: ACETAMINOPHEN
  11. PERINDOPRIL [Concomitant]
     Active Substance: PERINDOPRIL
  12. ATORVASTATIN [Concomitant]
     Active Substance: ATORVASTATIN

REACTIONS (4)
  - Gastrointestinal haemorrhage [Recovering/Resolving]
  - Faeces discoloured [Recovering/Resolving]
  - Blood urea increased [Recovering/Resolving]
  - Haemoglobin decreased [Recovering/Resolving]

NARRATIVE: CASE EVENT DATE: 20150916
